FAERS Safety Report 4881966-2 (Version None)
Quarter: 2006Q1

REPORT INFORMATION
  Report Type: 
  Country: None (occurrence: None)
  Receive Date: 20060117
  Receipt Date: 20060112
  Transmission Date: 20060701
  Serious: Yes (Other)
  Sender: FDA-Public Use
  Company Number: GB-GLAXOSMITHKLINE-B0406394A

PATIENT
  Age: 59 Year
  Sex: Male
  Weight: 70 kg

DRUGS (3)
  1. AVANDAMET [Suspect]
     Dosage: 2U TWICE PER DAY
     Route: 048
     Dates: start: 20040621
  2. IRBESARTAN [Concomitant]
     Indication: HYPERTENSION
     Dosage: 300MG PER DAY
     Route: 065
     Dates: start: 20020201
  3. ATORVASTATIN [Concomitant]
     Indication: BLOOD CHOLESTEROL INCREASED
     Dosage: 40MG PER DAY
     Route: 065

REACTIONS (1)
  - IRON DEFICIENCY ANAEMIA [None]
